FAERS Safety Report 9957233 (Version 1)
Quarter: 2014Q1

REPORT INFORMATION
  Report Type: Report from Study
  Country: US (occurrence: US)
  Receive Date: 20140304
  Receipt Date: 20140304
  Transmission Date: 20141002
  Serious: No
  Sender: FDA-Public Use
  Company Number: US-ABBVIE-13P-163-1097864-00

PATIENT
  Age: 71 Year
  Sex: Female

DRUGS (13)
  1. HUMIRA [Suspect]
     Indication: PSORIASIS
     Route: 058
     Dates: start: 20130508
  2. METFORMIN [Concomitant]
     Indication: DIABETES MELLITUS
     Dosage: 2 TABS IN THE AM AND 1 TAB IN THE PM
  3. GLIMEPIRIDE [Concomitant]
     Indication: DIABETES MELLITUS
  4. CARVEDILOL [Concomitant]
     Indication: CARDIAC FAILURE
  5. CARVEDILOL [Concomitant]
     Indication: BLOOD PRESSURE INCREASED
  6. FUROSEMIDE [Concomitant]
     Indication: CARDIAC FAILURE
  7. FUROSEMIDE [Concomitant]
     Indication: BLOOD PRESSURE INCREASED
  8. NIFEDIPINE [Concomitant]
     Indication: CARDIAC FAILURE
  9. NIFEDIPINE [Concomitant]
     Indication: BLOOD PRESSURE INCREASED
  10. ASA [Concomitant]
     Indication: CARDIAC FAILURE
  11. ASA [Concomitant]
     Indication: BLOOD PRESSURE INCREASED
  12. PRAVASTATIN [Concomitant]
     Indication: CARDIAC FAILURE
  13. PRAVASTATIN [Concomitant]
     Indication: BLOOD PRESSURE INCREASED

REACTIONS (2)
  - Wrong technique in drug usage process [Recovered/Resolved]
  - Injection site pain [Recovered/Resolved]
